FAERS Safety Report 4478226-0 (Version None)
Quarter: 2004Q4

REPORT INFORMATION
  Report Type: 
  Country: None (occurrence: None)
  Receive Date: 20041018
  Receipt Date: 20041018
  Transmission Date: 20050328
  Serious: Yes (Death, Other)
  Sender: FDA-Public Use
  Company Number: None

PATIENT
  Age: 60 Year
  Sex: Female
  Weight: 214.0978 kg

DRUGS (11)
  1. VENLAFAXINE HCL [Suspect]
     Indication: DEPRESSION
     Dosage: INCREASED TO 300 MG
     Dates: start: 20031101
  2. HALDOL [Concomitant]
  3. MORPHINE [Concomitant]
  4. ATORVASTATIN CALCIUM [Concomitant]
  5. PROZAC [Concomitant]
  6. REFOCOXIB [Concomitant]
  7. BENADRYL [Concomitant]
  8. LASIX [Concomitant]
  9. CERIPINE [Concomitant]
  10. LISINOPRIL [Concomitant]
  11. SYNTHROID [Concomitant]

REACTIONS (7)
  - BLOOD CREATINE PHOSPHOKINASE INCREASED [None]
  - HYPOXIA [None]
  - NEUROLEPTIC MALIGNANT SYNDROME [None]
  - PYREXIA [None]
  - RESPIRATORY FAILURE [None]
  - SEPSIS [None]
  - SKIN ULCER [None]
